FAERS Safety Report 25879818 (Version 1)
Quarter: 2025Q4

REPORT INFORMATION
  Report Type: Report from Study
  Country: JP (occurrence: JP)
  Receive Date: 20251003
  Receipt Date: 20251003
  Transmission Date: 20260118
  Serious: Yes (Hospitalization)
  Sender: ABBVIE
  Company Number: JP-TAKEDA-2025TJP009868

PATIENT
  Age: 64 Year
  Sex: Male
  Weight: 57 kg

DRUGS (6)
  1. LEUPROLIDE ACETATE [Suspect]
     Active Substance: LEUPROLIDE ACETATE
     Indication: Bulbospinal muscular atrophy congenital
     Dosage: FORM STRENGTH 11.25 MILLIGRAM, Q3MONTH
     Route: 065
     Dates: start: 20171107
  2. ENALAPRIL [Concomitant]
     Active Substance: ENALAPRIL
     Indication: Product used for unknown indication
     Dosage: 5 MILLIGRAM
  3. CARBOCYSTEINE [Concomitant]
     Active Substance: CARBOCYSTEINE
     Indication: Product used for unknown indication
     Dosage: 1000 MILLIGRAM
     Dates: start: 20180711
  4. ALLEGRA [Concomitant]
     Active Substance: FEXOFENADINE HYDROCHLORIDE
     Indication: Product used for unknown indication
     Dosage: 120 MILLIGRAM
     Dates: start: 20190122
  5. LANSOPRAZOLE [Concomitant]
     Active Substance: LANSOPRAZOLE
     Indication: Chronic gastritis
     Dosage: 15 MILLIGRAM
     Dates: start: 20201008
  6. AMLODIPINE [Concomitant]
     Active Substance: AMLODIPINE BESYLATE
     Indication: Product used for unknown indication
     Dosage: 5 MILLIGRAM

REACTIONS (1)
  - Tibia fracture [Recovering/Resolving]

NARRATIVE: CASE EVENT DATE: 20250506
